FAERS Safety Report 10206817 (Version 1)
Quarter: 2014Q2

REPORT INFORMATION
  Report Type: Spontaneous
  Country: US (occurrence: None)
  Receive Date: 20140528
  Receipt Date: 20140528
  Transmission Date: 20141212
  Serious: Yes (Disabling, Other)
  Sender: FDA-Public Use
  Company Number: None

PATIENT
  Age: 59 Year
  Sex: Female
  Weight: 108.86 kg

DRUGS (1)
  1. METFORMIN [Suspect]
     Indication: DIABETES MELLITUS
     Dosage: 1 TAKEN TWICE A DAY TWICE DAILY TAKEN BY MOUTH
     Route: 048

REACTIONS (8)
  - Muscular weakness [None]
  - Balance disorder [None]
  - Fall [None]
  - Ankle fracture [None]
  - Ligament rupture [None]
  - Injury [None]
  - Arthralgia [None]
  - Pain [None]
